FAERS Safety Report 7155061-6 (Version None)
Quarter: 2010Q4

REPORT INFORMATION
  Report Type: 
  Country: None (occurrence: None)
  Receive Date: 20101214
  Receipt Date: 20091229
  Transmission Date: 20110411
  Serious: No
  Sender: FDA-Public Use
  Company Number: US-AMGEN-QUU355067

PATIENT

DRUGS (2)
  1. ENBREL [Suspect]
     Indication: RHEUMATOID ARTHRITIS
     Dosage: 25 MG, 2 TIMES/WK
     Route: 058
     Dates: start: 20061024, end: 20090629
  2. FENOFIBRATE [Concomitant]
     Dosage: UNK UNK, UNK

REACTIONS (4)
  - CYSTITIS [None]
  - ENTEROBACTER INFECTION [None]
  - INFLUENZA [None]
  - MALAISE [None]
